FAERS Safety Report 24787296 (Version 1)
Quarter: 2024Q4

REPORT INFORMATION
  Report Type: Spontaneous
  Country: US (occurrence: US)
  Receive Date: 20241230
  Receipt Date: 20241230
  Transmission Date: 20250115
  Serious: No
  Sender: Unknown Manufacturer
  Company Number: US-STALCOR-2024-AER-02989

PATIENT
  Age: 8 Year
  Sex: Male

DRUGS (8)
  1. CASHEW [Suspect]
     Active Substance: CASHEW
     Indication: Product used for unknown indication
     Dates: start: 20240116
  2. ENGLISH WALNUT [Concomitant]
     Active Substance: ENGLISH WALNUT
     Indication: Product used for unknown indication
     Dates: start: 20240116
  3. BRAZIL NUT [Concomitant]
     Active Substance: BRAZIL NUT
     Indication: Product used for unknown indication
     Dates: start: 20240116
  4. ALMOND [Concomitant]
     Active Substance: ALMOND
     Indication: Product used for unknown indication
     Dates: start: 20240116
  5. PECAN [Concomitant]
     Active Substance: PECAN
     Indication: Product used for unknown indication
     Dates: start: 20240116
  6. COCONUT [Concomitant]
     Active Substance: COCONUT
     Indication: Product used for unknown indication
     Dates: start: 20240116
  7. HAZELNUT [Concomitant]
     Active Substance: CORYLUS AMERICANA POLLEN\HAZELNUT, UNSPECIFIED
     Indication: Product used for unknown indication
     Dates: start: 20240116
  8. PISTACHIO [Concomitant]
     Active Substance: PISTACHIO
     Indication: Product used for unknown indication
     Dates: start: 20240116

REACTIONS (1)
  - Drug ineffective [Unknown]

NARRATIVE: CASE EVENT DATE: 20240116
